FAERS Safety Report 4528779-9 (Version None)
Quarter: 2004Q4

REPORT INFORMATION
  Report Type: 
  Country: None (occurrence: None)
  Receive Date: 20041216
  Receipt Date: 20041213
  Transmission Date: 20050328
  Serious: Yes (Hospitalization)
  Sender: FDA-Public Use
  Company Number: GB-ROCHE-389058

PATIENT
  Age: 58 Year
  Sex: Female
  Weight: 110 kg

DRUGS (4)
  1. ORLISTAT [Suspect]
     Indication: OBESITY
     Route: 048
     Dates: start: 20041018
  2. FELODIPINE [Concomitant]
     Route: 048
  3. THYROXINE [Concomitant]
     Indication: HYPOTHYROIDISM
     Route: 048
  4. BENDROFLUAZIDE [Concomitant]

REACTIONS (1)
  - DIVERTICULITIS [None]
